FAERS Safety Report 20305332 (Version 2)
Quarter: 2022Q1

REPORT INFORMATION
  Report Type: Report from Study
  Country: CA (occurrence: CA)
  Receive Date: 20220106
  Receipt Date: 20220318
  Transmission Date: 20220423
  Serious: Yes (Other)
  Sender: FDA-Public Use
  Company Number: CA-NOVARTISPH-NVSC2021CA053591

PATIENT
  Sex: Female

DRUGS (3)
  1. COSENTYX [Suspect]
     Active Substance: SECUKINUMAB
     Indication: Psoriasis
     Dosage: 300 MG, QMO
     Route: 058
     Dates: start: 20201211
  2. BETAMETHASONE VALERATE [Concomitant]
     Active Substance: BETAMETHASONE VALERATE
     Indication: Product used for unknown indication
     Dosage: UNK
     Route: 061
     Dates: start: 2005
  3. BETAMETHASONE\CALCIPOTRIENE [Concomitant]
     Active Substance: BETAMETHASONE\CALCIPOTRIENE
     Indication: Product used for unknown indication
     Dosage: UNK
     Route: 061
     Dates: start: 2017

REACTIONS (7)
  - Immunodeficiency [Unknown]
  - Pruritus [Unknown]
  - Rash macular [Unknown]
  - Arthralgia [Unknown]
  - Discomfort [Unknown]
  - Candida infection [Unknown]
  - Tonsillitis [Unknown]

NARRATIVE: CASE EVENT DATE: 20210101
